FAERS Safety Report 9219363 (Version 4)
Quarter: 2014Q1

REPORT INFORMATION
  Report Type: Spontaneous
  Country: FR (occurrence: FR)
  Receive Date: 20130409
  Receipt Date: 20140227
  Transmission Date: 20141002
  Serious: Yes (Other)
  Sender: FDA-Public Use
  Company Number: FR-ELI_LILLY_AND_COMPANY-FR201304001765

PATIENT
  Age: 54 Year
  Sex: Female

DRUGS (4)
  1. PEMETREXED [Suspect]
     Indication: NON-SMALL CELL LUNG CANCER
     Dosage: 500 MG/M2, UNKNOWN
  2. DEXAMETHASONE [Concomitant]
     Dosage: 4 MG, BID
     Route: 048
  3. VITAMIN B12 [Concomitant]
     Dosage: 1000 MG, OTHER
     Route: 030
  4. FOLIC ACID [Concomitant]
     Dosage: 400 UG, OTHER
     Route: 048

REACTIONS (2)
  - Cerebellar syndrome [Recovering/Resolving]
  - Frontotemporal dementia [Recovering/Resolving]
